FAERS Safety Report 9007547 (Version 1)
Quarter: 2013Q1

REPORT INFORMATION
  Report Type: Spontaneous
  Country: US (occurrence: US)
  Receive Date: 20130111
  Receipt Date: 20130111
  Transmission Date: 20140127
  Serious: Yes (Other)
  Sender: FDA-Public Use
  Company Number: US-009507513-0911USA00615

PATIENT
  Age: 10 Year
  Sex: Male
  Weight: 42.64 kg

DRUGS (3)
  1. SINGULAIR [Suspect]
     Indication: SEASONAL ALLERGY
     Dosage: 1 UNK, QD
     Route: 048
     Dates: start: 20090331, end: 20090410
  2. NASONEX [Concomitant]
  3. PATADAY [Concomitant]

REACTIONS (4)
  - Obsessive-compulsive disorder [Recovering/Resolving]
  - Anxiety [Recovering/Resolving]
  - Hallucination [Recovering/Resolving]
  - Weight decreased [Recovering/Resolving]
